FAERS Safety Report 10767953 (Version 1)
Quarter: 2015Q1

REPORT INFORMATION
  Report Type: Spontaneous
  Country: US (occurrence: US)
  Receive Date: 20150205
  Receipt Date: 20150205
  Transmission Date: 20150721
  Serious: Yes (Hospitalization)
  Sender: FDA-Public Use
  Company Number: US-AMGEN-USASP2015009753

PATIENT
  Age: 67 Year
  Sex: Female

DRUGS (1)
  1. ENBREL [Suspect]
     Active Substance: ETANERCEPT
     Indication: RHEUMATOID ARTHRITIS
     Dosage: 50 MG, QWK
     Route: 065
     Dates: start: 20110101

REACTIONS (6)
  - Dizziness [Not Recovered/Not Resolved]
  - Loss of consciousness [Recovered/Resolved]
  - Blood pressure immeasurable [Not Recovered/Not Resolved]
  - Rash [Recovering/Resolving]
  - Skin discolouration [Recovering/Resolving]
  - Pulse absent [Not Recovered/Not Resolved]

NARRATIVE: CASE EVENT DATE: 20150120
